FAERS Safety Report 9951253 (Version 1)
Quarter: 2014Q1

REPORT INFORMATION
  Report Type: Report from Study
  Country: US (occurrence: US)
  Receive Date: 20140304
  Receipt Date: 20140304
  Transmission Date: 20141002
  Serious: No
  Sender: FDA-Public Use
  Company Number: US-ABBVIE-13P-163-1068226-00

PATIENT
  Age: 45 Year
  Sex: Female

DRUGS (4)
  1. HUMIRA [Suspect]
     Indication: CROHN^S DISEASE
     Dosage: LOADING DOSE
     Dates: start: 20130218, end: 20130218
  2. HUMIRA [Suspect]
     Dates: start: 20130304, end: 20130304
  3. HUMIRA [Suspect]
  4. CENTRUM MULTIVITAMINS [Concomitant]
     Indication: NUTRITIONAL SUPPLEMENTATION

REACTIONS (3)
  - Injection site erythema [Recovered/Resolved]
  - Acne [Unknown]
  - Back pain [Unknown]
